FAERS Safety Report 12538112 (Version 2)
Quarter: 2016Q3

REPORT INFORMATION
  Report Type: Report from Study
  Country: US (occurrence: US)
  Receive Date: 20160707
  Receipt Date: 20160721
  Transmission Date: 20161109
  Serious: Yes (Hospitalization, Other)
  Sender: FDA-Public Use
  Company Number: US-SA-2016SA122805

PATIENT
  Age: 73 Year
  Sex: Male

DRUGS (4)
  1. SOLOSTAR [Concomitant]
     Active Substance: DEVICE
     Indication: DEVICE THERAPY
  2. TOUJEO [Suspect]
     Active Substance: INSULIN GLARGINE
     Indication: TYPE 2 DIABETES MELLITUS
     Dosage: DOSE:15 UNIT(S)
     Route: 065
     Dates: start: 201602
  3. TOUJEO [Suspect]
     Active Substance: INSULIN GLARGINE
     Indication: TYPE 2 DIABETES MELLITUS
     Dosage: DOSE:15 UNIT(S)
     Route: 065
  4. SOLOSTAR [Concomitant]
     Active Substance: DEVICE
     Indication: DEVICE THERAPY
     Dates: start: 201602

REACTIONS (2)
  - Blood glucose decreased [Recovering/Resolving]
  - Cardiac disorder [Unknown]

NARRATIVE: CASE EVENT DATE: 2016
